FAERS Safety Report 7659194-7 (Version None)
Quarter: 2011Q3

REPORT INFORMATION
  Report Type: 
  Country: None (occurrence: None)
  Receive Date: 20110805
  Receipt Date: 20110802
  Transmission Date: 20111222
  Serious: Yes (Other)
  Sender: FDA-Public Use
  Company Number: US-PFIZER INC-2011145153

PATIENT
  Sex: Female
  Weight: 63.492 kg

DRUGS (6)
  1. GEODON [Suspect]
     Indication: DEPRESSION
     Dosage: 80MG, DAILY
     Route: 048
     Dates: start: 20070201
  2. VENLAFAXINE HYDROCHLORIDE [Concomitant]
     Indication: DEPRESSION
     Dosage: 200 MG, DAILY
     Route: 048
  3. CITALOPRAM HYDROBROMIDE [Concomitant]
     Indication: DEPRESSION
     Dosage: 20 MG, DAILY
     Route: 048
  4. GEODON [Suspect]
     Indication: BIPOLAR DISORDER
  5. TRAZODONE [Concomitant]
     Indication: DEPRESSION
     Dosage: 50 MG, DAILY
     Route: 048
  6. EFFEXOR [Suspect]
     Indication: DEPRESSION
     Dosage: UNK
     Route: 048

REACTIONS (2)
  - INSOMNIA [None]
  - BIPOLAR DISORDER [None]
